FAERS Safety Report 7355781-4 (Version None)
Quarter: 2011Q1

REPORT INFORMATION
  Report Type: 
  Country: None (occurrence: None)
  Receive Date: 20110316
  Receipt Date: 20110310
  Transmission Date: 20110831
  Serious: Yes (Disabling)
  Sender: FDA-Public Use
  Company Number: GB-MERCK-1103USA01553

PATIENT
  Age: 12 Year
  Sex: Male
  Weight: 44 kg

DRUGS (8)
  1. SULFAMETHOXAZOLE AND TRIMETHOPRIM [Concomitant]
     Indication: ANTIFUNGAL PROPHYLAXIS
     Route: 048
     Dates: end: 20091101
  2. METHOTREXATE [Concomitant]
     Dosage: INTRATHECAL
     Route: 065
     Dates: start: 20110216
  3. METHOTREXATE [Concomitant]
     Indication: LEUKAEMIA RECURRENT
     Route: 048
     Dates: start: 20100101
  4. METHOTREXATE [Concomitant]
     Indication: ACUTE LYMPHOCYTIC LEUKAEMIA
     Route: 048
     Dates: start: 20100101
  5. DECADRON [Suspect]
     Indication: LEUKAEMIA RECURRENT
     Route: 048
     Dates: start: 20100217, end: 20100220
  6. MERCAPTOPURINE [Concomitant]
     Indication: ACUTE LYMPHOCYTIC LEUKAEMIA
     Route: 048
     Dates: start: 20100101
  7. MERCAPTOPURINE [Concomitant]
     Indication: LEUKAEMIA RECURRENT
     Route: 048
     Dates: start: 20100101
  8. METHOTREXATE [Concomitant]
     Dosage: INTRATHECAL
     Route: 065
     Dates: start: 20110216

REACTIONS (3)
  - HYPERAESTHESIA [None]
  - IVTH NERVE PARALYSIS [None]
  - VITH NERVE PARALYSIS [None]
